FAERS Safety Report 8545582-3 (Version None)
Quarter: 2012Q3

REPORT INFORMATION
  Report Type: 
  Country: None (occurrence: None)
  Receive Date: 20120727
  Receipt Date: 20111024
  Transmission Date: 20120928
  Serious: No
  Sender: FDA-Public Use
  Company Number: US-ASTRAZENECA-2011SE64053

PATIENT
  Age: 50 Year
  Sex: Female
  Weight: 95.3 kg

DRUGS (11)
  1. SEROQUEL XR [Suspect]
     Indication: DEPRESSION
     Route: 048
  2. SEROQUEL XR [Suspect]
     Route: 048
  3. CLONIPINE [Concomitant]
     Indication: ANXIETY
  4. SEROQUEL XR [Suspect]
     Indication: ANXIETY
     Route: 048
  5. SEROQUEL XR [Suspect]
     Route: 048
  6. LAMICTAL [Concomitant]
     Indication: AFFECTIVE DISORDER
  7. SEROQUEL XR [Suspect]
     Route: 048
  8. SEROQUEL XR [Suspect]
     Route: 048
  9. SEROQUEL XR [Suspect]
     Route: 048
  10. SEROQUEL XR [Suspect]
     Indication: BIPOLAR DISORDER
     Route: 048
  11. SEROQUEL XR [Suspect]
     Route: 048

REACTIONS (4)
  - VOMITING [None]
  - OFF LABEL USE [None]
  - MENTAL IMPAIRMENT [None]
  - NAUSEA [None]
